FAERS Safety Report 7230056-2 (Version None)
Quarter: 2011Q1

REPORT INFORMATION
  Report Type: 
  Country: None (occurrence: None)
  Receive Date: 20110118
  Receipt Date: 20110107
  Transmission Date: 20110831
  Serious: No
  Sender: FDA-Public Use
  Company Number: 2010BI000826

PATIENT
  Sex: Male

DRUGS (1)
  1. TYSABRI [Suspect]
     Indication: MULTIPLE SCLEROSIS
     Route: 042
     Dates: start: 20091026, end: 20091123

REACTIONS (11)
  - BODY TEMPERATURE INCREASED [None]
  - ASTHENIA [None]
  - PRODUCTIVE COUGH [None]
  - MUSCLE TIGHTNESS [None]
  - BACK PAIN [None]
  - VISUAL IMPAIRMENT [None]
  - HEADACHE [None]
  - GAIT DISTURBANCE [None]
  - VISION BLURRED [None]
  - MOBILITY DECREASED [None]
  - FEELING ABNORMAL [None]
